FAERS Safety Report 20450598 (Version 13)
Quarter: 2022Q4

REPORT INFORMATION
  Report Type: Report from Study
  Country: CN (occurrence: CN)
  Receive Date: 20220209
  Receipt Date: 20221213
  Transmission Date: 20230113
  Serious: Yes (Hospitalization)
  Sender: FDA-Public Use
  Company Number: CN-KARYOPHARM THERAPEUTICS, INC.-2022KPT000126

PATIENT
  Age: 62 Year
  Sex: Male
  Weight: 88 kg

DRUGS (15)
  1. RITUXIMAB [Suspect]
     Active Substance: RITUXIMAB
     Indication: Diffuse large B-cell lymphoma
     Dosage: 787.5 MG/M2, DAY 1 OF A 21 DAY CYCLE
     Route: 042
     Dates: start: 20220121
  2. GEMCITABINE [Suspect]
     Active Substance: GEMCITABINE
     Indication: Diffuse large B-cell lymphoma
     Dosage: 1000 MG/M2, DAYS 1 AND 8 OF A 21 DAY CYCLE
     Route: 042
     Dates: start: 20220121, end: 20220128
  3. DEXAMETHASONE [Suspect]
     Active Substance: DEXAMETHASONE
     Indication: Diffuse large B-cell lymphoma
     Dosage: 20 MG, DAYS 1,2, 3, AND 4 OF A 21 DAYS CYCLE
     Route: 048
     Dates: start: 20220121
  4. CISPLATIN [Suspect]
     Active Substance: CISPLATIN
     Indication: Diffuse large B-cell lymphoma
     Dosage: 75 MG/M2, 1X/3 WEEKS
     Route: 042
     Dates: start: 20220121
  5. LEVOTHYROXINE [Concomitant]
     Active Substance: LEVOTHYROXINE
     Indication: Thyroid hormone replacement therapy
     Dosage: 75 UG, QD
     Route: 048
     Dates: start: 1996
  6. HYDROCORTISONE ACETATE [Concomitant]
     Active Substance: HYDROCORTISONE ACETATE
     Indication: Thyroid hormone replacement therapy
     Dosage: 30 MG, QD
     Route: 048
     Dates: start: 1996
  7. HYDROCORTISONE ACETATE [Concomitant]
     Active Substance: HYDROCORTISONE ACETATE
     Dosage: 20 MG, QD
     Route: 048
     Dates: start: 1996
  8. CALCIUM CARBONATE\CHOLECALCIFEROL [Concomitant]
     Active Substance: CALCIUM CARBONATE\CHOLECALCIFEROL
     Indication: Vitamin supplementation
     Dosage: 1 DOSAGE FORM, QD
     Route: 048
     Dates: start: 1996
  9. CALCIUM CARBONATE\CHOLECALCIFEROL [Concomitant]
     Active Substance: CALCIUM CARBONATE\CHOLECALCIFEROL
     Indication: Prophylaxis
  10. INSULIN ASPART 30 [Concomitant]
     Indication: Diabetes mellitus
     Dosage: 14 IU, TID
     Route: 058
     Dates: start: 2014, end: 20220127
  11. INSULIN NOS [Concomitant]
     Active Substance: INSULIN NOS
     Indication: Diabetes mellitus
     Dosage: 10 IU, QD
     Dates: start: 20220127, end: 20220130
  12. ONDANSETRON [Concomitant]
     Active Substance: ONDANSETRON
     Indication: Prophylaxis
     Dosage: 8 MG, TID
     Dates: start: 20220121, end: 20220121
  13. APREPITANT [Concomitant]
     Active Substance: APREPITANT
     Indication: Prophylaxis
     Dosage: 125 MG, QD
     Route: 048
     Dates: start: 20220121, end: 20220121
  14. APREPITANT [Concomitant]
     Active Substance: APREPITANT
     Dosage: 80 MG, QD
     Route: 048
     Dates: start: 20220122, end: 20220123
  15. SODIUM CHLORIDE [Concomitant]
     Active Substance: SODIUM CHLORIDE
     Dosage: UNK
     Route: 042
     Dates: start: 20220121, end: 20220121

REACTIONS (1)
  - Hypokalaemia [Recovered/Resolved]

NARRATIVE: CASE EVENT DATE: 20220127
